FAERS Safety Report 25663876 (Version 1)
Quarter: 2025Q3

REPORT INFORMATION
  Report Type: Spontaneous
  Country: CN (occurrence: CN)
  Receive Date: 20250811
  Receipt Date: 20250811
  Transmission Date: 20251020
  Serious: Yes (Hospitalization, Other)
  Sender: JAZZ
  Company Number: CN-NJLUYE-2025LURBI00147

PATIENT
  Sex: Male
  Weight: 150 kg

DRUGS (3)
  1. ZEPZELCA [Suspect]
     Active Substance: LURBINECTEDIN
     Indication: Small cell lung cancer
     Dates: start: 20250617, end: 20250617
  2. ZEPZELCA [Suspect]
     Active Substance: LURBINECTEDIN
     Dates: start: 20250716, end: 20250716
  3. IVONESCIMAB [Concomitant]
     Active Substance: IVONESCIMAB
     Indication: Small cell lung cancer

REACTIONS (3)
  - Immune-mediated myocarditis [Recovering/Resolving]
  - Immune-mediated lung disease [Recovering/Resolving]
  - Acute myocardial infarction [Unknown]

NARRATIVE: CASE EVENT DATE: 20250621
